FAERS Safety Report 4506197-7 (Version None)
Quarter: 2004Q4

REPORT INFORMATION
  Report Type: 
  Country: None (occurrence: None)
  Receive Date: 20041025
  Receipt Date: 20040302
  Transmission Date: 20050328
  Serious: Yes (Other)
  Sender: FDA-Public Use
  Company Number: US-JNJFOC-20031003023

PATIENT
  Age: 82 Year
  Sex: Female
  Weight: 46.2669 kg

DRUGS (4)
  1. REMICADE [Suspect]
     Indication: RHEUMATOID ARTHRITIS
     Dosage: 1 IN1  DAY INTRAVENOUS
     Route: 042
     Dates: start: 20000101
  2. METHOTREXATE [Concomitant]
  3. ACTONEL [Concomitant]
  4. BEXTRA [Concomitant]

REACTIONS (2)
  - BRONCHITIS BACTERIAL [None]
  - LUNG INFECTION PSEUDOMONAL [None]
